FAERS Safety Report 5199223-6 (Version None)
Quarter: 2006Q4

REPORT INFORMATION
  Report Type: 
  Country: None (occurrence: None)
  Receive Date: 20061016
  Receipt Date: 20060621
  Transmission Date: 20070319
  Serious: No
  Sender: FDA-Public Use
  Company Number: 2006SP002503

PATIENT
  Age: 53 Year
  Sex: Female

DRUGS (3)
  1. LUNESTA [Suspect]
     Indication: INSOMNIA
     Dosage: 3 MG;UNKNOWN;ORAL
     Route: 048
     Dates: start: 20051001
  2. CELEBREX [Concomitant]
  3. VITAMIN CAP [Concomitant]

REACTIONS (4)
  - CHEST DISCOMFORT [None]
  - DRUG INEFFECTIVE [None]
  - MIDDLE INSOMNIA [None]
  - PALPITATIONS [None]
